FAERS Safety Report 4922583-5 (Version None)
Quarter: 2006Q1

REPORT INFORMATION
  Report Type: 
  Country: None (occurrence: None)
  Receive Date: 20060224
  Receipt Date: 20060131
  Transmission Date: 20060701
  Serious: Yes (Hospitalization)
  Sender: FDA-Public Use
  Company Number: JP-JPN-A200600427

PATIENT
  Age: 71 Year
  Sex: Male
  Weight: 64 kg

DRUGS (10)
  1. MODACIN [Suspect]
     Indication: PNEUMONIA
     Dosage: 1G TWICE PER DAY
     Route: 042
     Dates: start: 20051216, end: 20051219
  2. PRODIF [Suspect]
     Indication: PNEUMONIA
     Route: 042
     Dates: start: 20051216, end: 20051219
  3. DALACIN [Suspect]
     Indication: PNEUMONIA
     Dosage: 300MG TWICE PER DAY
     Route: 042
     Dates: start: 20051216, end: 20051219
  4. GASTER [Suspect]
     Indication: GASTRITIS
     Dosage: 20MG PER DAY
     Route: 042
     Dates: start: 20051218, end: 20051219
  5. PENICILLIN [Concomitant]
     Indication: PNEUMONIA
     Dosage: 2G PER DAY
     Route: 042
     Dates: start: 20051208, end: 20051216
  6. SELBEX [Concomitant]
     Indication: GASTRITIS
     Dosage: 150MG PER DAY
     Route: 048
     Dates: start: 20020101
  7. CYANOCOBALAMIN [Concomitant]
     Indication: NEUROPATHY PERIPHERAL
     Dosage: 1500MCG PER DAY
     Route: 048
     Dates: start: 20020101, end: 20051219
  8. VOLTAREN [Concomitant]
     Indication: RHEUMATOID ARTHRITIS
     Dosage: 37.5MG PER DAY
     Route: 048
     Dates: start: 20020101, end: 20051219
  9. PREDNISOLONE [Concomitant]
     Indication: RHEUMATOID ARTHRITIS
     Dosage: 5MG PER DAY
     Route: 048
     Dates: start: 20020101
  10. DIGOXIN [Concomitant]
     Indication: ATRIAL FIBRILLATION
     Dosage: .125MG PER DAY
     Route: 048
     Dates: start: 20051217

REACTIONS (6)
  - ALANINE AMINOTRANSFERASE INCREASED [None]
  - ASPARTATE AMINOTRANSFERASE INCREASED [None]
  - BLOOD BILIRUBIN INCREASED [None]
  - BLOOD LACTATE DEHYDROGENASE INCREASED [None]
  - GAMMA-GLUTAMYLTRANSFERASE INCREASED [None]
  - HEPATIC FUNCTION ABNORMAL [None]
